FAERS Safety Report 18198094 (Version 2)
Quarter: 2020Q3

REPORT INFORMATION
  Report Type: Report from Study
  Country: IT (occurrence: IT)
  Receive Date: 20200826
  Receipt Date: 20200915
  Transmission Date: 20201103
  Serious: Yes (Hospitalization)
  Sender: FDA-Public Use
  Company Number: NVSC2020IT228503

PATIENT
  Age: 20 Year
  Sex: Female
  Weight: 52 kg

DRUGS (5)
  1. DABRAFENIB [Suspect]
     Active Substance: DABRAFENIB
     Dosage: 200 MG (200 MG/100 MG)
     Route: 065
     Dates: start: 20200908
  2. LEVETIRACETAM. [Concomitant]
     Active Substance: LEVETIRACETAM
     Indication: EPILEPSY
     Dosage: 500 MG, BID
     Route: 065
     Dates: start: 20200513, end: 20200815
  3. DABRAFENIB [Suspect]
     Active Substance: DABRAFENIB
     Indication: ASTROCYTOMA
     Dosage: 250 MG (250 MG/125 MG)
     Route: 048
     Dates: start: 20200716, end: 20200815
  4. TRAMETINIB [Suspect]
     Active Substance: TRAMETINIB
     Indication: ASTROCYTOMA
     Dosage: 1.5 MG (1.5 MG/0.5 MG)
     Route: 048
     Dates: start: 20200716, end: 20200815
  5. TRAMETINIB [Suspect]
     Active Substance: TRAMETINIB
     Dosage: 1 MG (1 MG/0.5 MG)
     Route: 065
     Dates: start: 20200908

REACTIONS (4)
  - Hemiparesis [Not Recovered/Not Resolved]
  - Tumour haemorrhage [Recovering/Resolving]
  - Visual field defect [Not Recovered/Not Resolved]
  - Headache [Recovered/Resolved]

NARRATIVE: CASE EVENT DATE: 20200815
